FAERS Safety Report 9242996 (Version 1)
Quarter: 2013Q2

REPORT INFORMATION
  Report Type: Spontaneous
  Country: AU (occurrence: AU)
  Receive Date: 20130419
  Receipt Date: 20130419
  Transmission Date: 20140414
  Serious: Yes (Other)
  Sender: FDA-Public Use
  Company Number: PHHY2013AU037266

PATIENT
  Age: 61 Year
  Sex: Female
  Weight: 50 kg

DRUGS (11)
  1. METOPROLOL [Suspect]
     Dosage: 50 MG, DAILY
     Route: 048
     Dates: start: 20120715, end: 20130124
  2. CALTRATE [Concomitant]
  3. EPREX [Concomitant]
  4. FOLIC ACID [Concomitant]
  5. HYDOPA [Concomitant]
  6. LASIX [Concomitant]
  7. LIPITOR [Concomitant]
  8. NEXIUM [Concomitant]
  9. NITRODUR [Concomitant]
  10. PLAVIX [Concomitant]
  11. THYROXINE [Concomitant]

REACTIONS (2)
  - Seasonal allergy [Unknown]
  - Hallucination [Unknown]
